FAERS Safety Report 16712623 (Version 11)
Quarter: 2020Q3

REPORT INFORMATION
  Report Type: Report from Study
  Country: CL (occurrence: CL)
  Receive Date: 20190816
  Receipt Date: 20200720
  Transmission Date: 20201102
  Serious: Yes (Disabling, Other)
  Sender: FDA-Public Use
  Company Number: PHHY2019CL187310

PATIENT
  Age: 66 Year
  Sex: Female
  Weight: 64 kg

DRUGS (12)
  1. KISQALI [Suspect]
     Active Substance: RIBOCICLIB
     Dosage: 600 MG, QD
     Route: 048
     Dates: start: 20190726
  2. EXEMESTANE. [Concomitant]
     Active Substance: EXEMESTANE
     Indication: PRODUCT USED FOR UNKNOWN INDICATION
     Dosage: UNK
     Route: 065
  3. DOLOTEN [Concomitant]
     Active Substance: ACETAMINOPHEN\TRAMADOL
     Indication: CHEST PAIN
     Dosage: 1 MG PER NIGHT
     Route: 065
  4. FEMARA [Concomitant]
     Active Substance: LETROZOLE
     Indication: PRODUCT USED FOR UNKNOWN INDICATION
     Dosage: UNK
     Route: 065
     Dates: start: 201510
  5. CAPECITABINE. [Concomitant]
     Active Substance: CAPECITABINE
     Indication: PRODUCT USED FOR UNKNOWN INDICATION
     Dosage: UNK
     Route: 065
     Dates: start: 201610
  6. KISQALI [Suspect]
     Active Substance: RIBOCICLIB
     Indication: BREAST CANCER
     Dosage: 600 MG, QD (3 TABLETS)
     Route: 048
     Dates: start: 20190725
  7. VINORELBINE [Concomitant]
     Active Substance: VINORELBINE TARTRATE
     Indication: PRODUCT USED FOR UNKNOWN INDICATION
     Dosage: UNK
     Route: 065
  8. KISQALI [Suspect]
     Active Substance: RIBOCICLIB
     Dosage: UNK
     Route: 065
  9. PACLITAXEL. [Concomitant]
     Active Substance: PACLITAXEL
     Indication: PRODUCT USED FOR UNKNOWN INDICATION
     Dosage: UNK
     Route: 065
  10. EUTIROX [Concomitant]
     Active Substance: LEVOTHYROXINE SODIUM
     Indication: PRODUCT USED FOR UNKNOWN INDICATION
     Dosage: 75 MG
     Route: 065
  11. FULVESTRANT. [Concomitant]
     Active Substance: FULVESTRANT
     Indication: BREAST CANCER
     Dosage: UNK
     Route: 065
  12. ATORVASTATINE [Concomitant]
     Active Substance: ATORVASTATIN
     Indication: PRODUCT USED FOR UNKNOWN INDICATION
     Dosage: 10 MG
     Route: 065

REACTIONS (53)
  - Fine motor skill dysfunction [Unknown]
  - Insomnia [Unknown]
  - Blood triglycerides increased [Unknown]
  - Nasopharyngitis [Unknown]
  - Dermatitis allergic [Recovered/Resolved with Sequelae]
  - Nausea [Unknown]
  - Haemoglobin distribution width increased [Unknown]
  - Diarrhoea [Recovered/Resolved]
  - White blood cell count decreased [Unknown]
  - Rash papular [Unknown]
  - Lymphadenopathy [Not Recovered/Not Resolved]
  - Leukaemia [Unknown]
  - Neutropenia [Unknown]
  - Carbohydrate antigen 15-3 increased [Unknown]
  - Mean cell volume increased [Unknown]
  - Asthma [Not Recovered/Not Resolved]
  - Constipation [Recovering/Resolving]
  - Blood alkaline phosphatase increased [Unknown]
  - Musculoskeletal pain [Unknown]
  - Gamma-glutamyltransferase increased [Unknown]
  - Erythema [Unknown]
  - Breast pain [Unknown]
  - Nervousness [Not Recovered/Not Resolved]
  - Breast cancer [Unknown]
  - Malignant neoplasm progression [Unknown]
  - Lymphadenopathy [Recovered/Resolved]
  - Confusional state [Unknown]
  - Investigation abnormal [Unknown]
  - Neutrophil count decreased [Unknown]
  - Tremor [Unknown]
  - Paralysis [Not Recovered/Not Resolved]
  - Inflammation [Unknown]
  - Colitis [Recovering/Resolving]
  - Anisocytosis [Unknown]
  - Respiratory tract congestion [Unknown]
  - Chest pain [Unknown]
  - Lymphocyte count abnormal [Unknown]
  - Constipation [Recovered/Resolved]
  - Constipation [Recovered/Resolved]
  - Diarrhoea [Recovered/Resolved]
  - Breast swelling [Not Recovered/Not Resolved]
  - Blood cholesterol increased [Unknown]
  - Dysphonia [Recovered/Resolved]
  - Platelet disorder [Unknown]
  - Gamma-glutamyltransferase increased [Unknown]
  - Diarrhoea [Recovered/Resolved]
  - Cough [Unknown]
  - Acne [Unknown]
  - Pulmonary oedema [Not Recovered/Not Resolved]
  - Gastrooesophageal reflux disease [Unknown]
  - Prothrombin time prolonged [Unknown]
  - Blood calcium increased [Unknown]
  - Dysphonia [Unknown]

NARRATIVE: CASE EVENT DATE: 20190726
